FAERS Safety Report 7510706-3 (Version None)
Quarter: 2011Q2

REPORT INFORMATION
  Report Type: 
  Country: None (occurrence: None)
  Receive Date: 20110530
  Receipt Date: 20110523
  Transmission Date: 20111010
  Serious: Yes (Hospitalization)
  Sender: FDA-Public Use
  Company Number: US-AMGEN-USACT2011025487

PATIENT
  Age: 63 Year
  Sex: Male

DRUGS (3)
  1. PLACEBO [Suspect]
     Indication: CARDIAC FAILURE
     Dosage: UNK UNK, Q2WK
     Route: 058
     Dates: start: 20110425, end: 20110518
  2. BLINDED DARBEPOETIN ALFA [Suspect]
     Indication: CARDIAC FAILURE
     Dosage: UNK UNK, Q2WK
     Route: 058
     Dates: start: 20110425, end: 20110518
  3. AMIODARONE HCL [Concomitant]

REACTIONS (1)
  - VENTRICULAR TACHYCARDIA [None]
